FAERS Safety Report 4304038-4 (Version None)
Quarter: 2004Q1

REPORT INFORMATION
  Report Type: 
  Country: None (occurrence: None)
  Receive Date: 20040223
  Receipt Date: 20031208
  Transmission Date: 20041129
  Serious: No
  Sender: FDA-Public Use
  Company Number: PHEH2003US09999

PATIENT
  Age: 72 Year
  Sex: Female
  Weight: 55.8 kg

DRUGS (4)
  1. ZELNORM [Suspect]
     Indication: IRRITABLE BOWEL SYNDROME
     Dosage: 6 MG, BID
     Dates: start: 20031016, end: 20031023
  2. EXELON [Concomitant]
  3. ZANTAC [Concomitant]
  4. MOTRIN [Concomitant]

REACTIONS (1)
  - RASH ERYTHEMATOUS [None]
